FAERS Safety Report 18042818 (Version 1)
Quarter: 2020Q3

REPORT INFORMATION
  Report Type: Other
  Country: CA (occurrence: CA)
  Receive Date: 20200720
  Receipt Date: 20200720
  Transmission Date: 20201103
  Serious: Yes (Death, Other)
  Sender: FDA-Public Use
  Company Number: CA-ACCORD-190946

PATIENT

DRUGS (2)
  1. CARBOPLATIN. [Suspect]
     Active Substance: CARBOPLATIN
     Indication: MEDULLOBLASTOMA
     Dosage: 1 EVERY 1 DAYS, SOLUTION INTRAVENOUS
     Route: 042
  2. THIOTEPA. [Suspect]
     Active Substance: THIOTEPA
     Indication: MEDULLOBLASTOMA
     Dosage: 1 EVERY 1 DAYS
     Route: 042

REACTIONS (3)
  - Respiratory failure [Fatal]
  - Pulmonary hypertension [Fatal]
  - Off label use [Unknown]
